FAERS Safety Report 5011508-2 (Version None)
Quarter: 2006Q2

REPORT INFORMATION
  Report Type: 
  Country: None (occurrence: None)
  Receive Date: 20060524
  Receipt Date: 20060515
  Transmission Date: 20061013
  Serious: Yes (Death, Hospitalization)
  Sender: FDA-Public Use
  Company Number: ZICO001293

PATIENT
  Age: 70 Year
  Sex: Female

DRUGS (7)
  1. PRIALT [Suspect]
     Indication: BACK PAIN
     Dosage: UG, ONCE/HOUR, INTRATHECAL
     Route: 037
     Dates: start: 20050701, end: 20060123
  2. HYDROMORPHONE HCL [Concomitant]
  3. CLONIDINE [Concomitant]
  4. BUPIVACAINE [Concomitant]
  5. DILAUDID [Concomitant]
  6. FENTANYL [Concomitant]
  7. ANTIBIOTICS [Concomitant]

REACTIONS (7)
  - ABDOMINAL PAIN [None]
  - DIZZINESS [None]
  - HYPOTENSION [None]
  - PATHOGEN RESISTANCE [None]
  - PNEUMONIA [None]
  - RESPIRATORY FAILURE [None]
  - SYNCOPE [None]
